FAERS Safety Report 4364545-5 (Version None)
Quarter: 2004Q2

REPORT INFORMATION
  Report Type: 
  Country: None (occurrence: None)
  Receive Date: 20040525
  Receipt Date: 20040427
  Transmission Date: 20050107
  Serious: Yes (Death, Hospitalization, Other)
  Sender: FDA-Public Use
  Company Number: FR-BRISTOL-MYERS SQUIBB COMPANY-12574240

PATIENT
  Age: 58 Year
  Sex: Female
  Weight: 80 kg

DRUGS (3)
  1. LOPRIL TABS 25 MG [Suspect]
     Dosage: 1 TABLET DAILY
     Route: 048
     Dates: end: 20040301
  2. DIGOXIN [Suspect]
     Indication: CONGESTIVE CARDIOMYOPATHY
     Dosage: 1 TABLET DAILY
     Route: 048
     Dates: start: 20040209, end: 20040211
  3. ALPRESS [Suspect]
     Dosage: ALPRESS SR VERSUS LP
     Route: 048
     Dates: end: 20040211

REACTIONS (13)
  - ACCIDENTAL OVERDOSE [None]
  - ARRHYTHMIA [None]
  - ATRIAL FIBRILLATION [None]
  - BLOOD CULTURE POSITIVE [None]
  - CARDIAC FAILURE [None]
  - CHOLELITHIASIS [None]
  - CIRCULATORY COLLAPSE [None]
  - DRUG LEVEL INCREASED [None]
  - HEPATOMEGALY [None]
  - MEDICATION ERROR [None]
  - RENAL FAILURE ACUTE [None]
  - SOMNOLENCE [None]
  - SUPRAVENTRICULAR EXTRASYSTOLES [None]
